FAERS Safety Report 10175430 (Version 1)
Quarter: 2014Q2

REPORT INFORMATION
  Report Type: Spontaneous
  Country: JP (occurrence: JP)
  Receive Date: 20140515
  Receipt Date: 20140515
  Transmission Date: 20141212
  Serious: Yes (Other)
  Sender: FDA-Public Use
  Company Number: JP-TEVA-480520ISR

PATIENT
  Age: 94 Year
  Sex: Female

DRUGS (2)
  1. FLUVOXAMINE [Suspect]
     Indication: ANXIETY
     Route: 065
  2. CELECOXIB [Interacting]
     Indication: ARTHRITIS
     Route: 065

REACTIONS (2)
  - Delirium [Recovering/Resolving]
  - Drug interaction [Recovering/Resolving]
